FAERS Safety Report 9039542 (Version 1)
Quarter: 2013Q1

REPORT INFORMATION
  Report Type: Spontaneous
  Country: CA (occurrence: CA)
  Receive Date: 20130129
  Receipt Date: 20130129
  Transmission Date: 20140127
  Serious: Yes (Life-Threatening, Hospitalization)
  Sender: FDA-Public Use
  Company Number: CA-B.I. PHARMACEUTICALS,INC./RIDGEFIELD-2013-CN-00132CN

PATIENT
  Age: 80 Year
  Sex: Male
  Weight: 77.11 kg

DRUGS (10)
  1. PRADAX [Suspect]
     Dosage: 220 MG
     Route: 048
  2. AMLODIPINE [Concomitant]
  3. CALCIUM [Concomitant]
  4. DIOVAN-HCT [Concomitant]
  5. METOPROLOL [Concomitant]
  6. MULTIVITAMINE(S) [Concomitant]
  7. NITRO-DUR [Concomitant]
  8. PREDNISONE [Concomitant]
  9. ROSUVASTATIN [Concomitant]
  10. VITAMIN D [Concomitant]

REACTIONS (4)
  - Activated partial thromboplastin time prolonged [Unknown]
  - Angina unstable [Unknown]
  - Condition aggravated [Unknown]
  - Haemoglobin decreased [Unknown]
